FAERS Safety Report 10408378 (Version 4)
Quarter: 2014Q4

REPORT INFORMATION
  Report Type: Spontaneous
  Country: BR (occurrence: BR)
  Receive Date: 20140826
  Receipt Date: 20141130
  Transmission Date: 20150528
  Serious: Yes (Death, Hospitalization, Other)
  Sender: FDA-Public Use
  Company Number: BR-BRISTOL-MYERS SQUIBB COMPANY-21329909

PATIENT
  Age: 66 Year
  Sex: Male

DRUGS (3)
  1. METFORMIN HCL [Suspect]
     Active Substance: METFORMIN HYDROCHLORIDE
     Indication: DIABETES MELLITUS
     Route: 048
     Dates: start: 2006
  2. ACETYLSALICYLIC ACID [Concomitant]
     Active Substance: ASPIRIN
     Route: 048
     Dates: start: 2006
  3. TICAGRELOR [Suspect]
     Active Substance: TICAGRELOR
     Indication: CORONARY ARTERY OCCLUSION
     Route: 048
     Dates: start: 201310

REACTIONS (4)
  - Coronary artery occlusion [Recovered/Resolved]
  - Myocardial infarction [Unknown]
  - Multi-organ failure [Fatal]
  - Diabetic neuropathy [Recovered/Resolved with Sequelae]

NARRATIVE: CASE EVENT DATE: 2009
